FAERS Safety Report 24285061 (Version 1)
Quarter: 2024Q3

REPORT INFORMATION
  Report Type: Spontaneous
  Country: US (occurrence: None)
  Receive Date: 20240901
  Receipt Date: 20240901
  Transmission Date: 20241017
  Serious: Yes (Hospitalization)
  Sender: Public
  Company Number: None

PATIENT
  Sex: Female

DRUGS (5)
  1. TADALAFIL [Suspect]
     Active Substance: TADALAFIL
     Indication: Pulmonary arterial hypertension
     Dosage: FREQUENCY : DAILY;?
     Route: 048
     Dates: start: 202406
  2. AMBRISENTAN [Suspect]
     Active Substance: AMBRISENTAN
     Indication: Pulmonary arterial hypertension
     Dosage: FREQUENCY : DAILY;?
     Route: 048
     Dates: start: 202407
  3. PROLIA [Concomitant]
     Active Substance: DENOSUMAB
  4. TOBRAMYCIN [Concomitant]
  5. CLARITHROMYCIN [Concomitant]

REACTIONS (2)
  - Fall [None]
  - Intentional dose omission [None]

NARRATIVE: CASE EVENT DATE: 20240806
